FAERS Safety Report 4391858-3 (Version None)
Quarter: 2004Q3

REPORT INFORMATION
  Report Type: 
  Country: None (occurrence: None)
  Receive Date: 20040702
  Receipt Date: 20040427
  Transmission Date: 20050211
  Serious: Yes (Hospitalization)
  Sender: FDA-Public Use
  Company Number: 2004UW08665

PATIENT
  Age: 56 Year
  Sex: Male

DRUGS (2)
  1. CRESTOR [Suspect]
     Dosage: 20 MG PO
     Route: 048
  2. CRESTOR [Suspect]
     Dosage: 10 MG PO
     Route: 048

REACTIONS (4)
  - ABDOMINAL PAIN [None]
  - MYALGIA [None]
  - NAUSEA [None]
  - VOMITING [None]
